FAERS Safety Report 12616428 (Version 2)
Quarter: 2016Q3

REPORT INFORMATION
  Report Type: Spontaneous
  Country: US (occurrence: US)
  Receive Date: 20160802
  Receipt Date: 20160803
  Transmission Date: 20161109
  Serious: Yes (Other)
  Sender: FDA-Public Use
  Company Number: US-PFIZER INC-2849127

PATIENT
  Age: 61 Year
  Sex: Male

DRUGS (2)
  1. ZOSYN [Concomitant]
     Active Substance: PIPERACILLIN SODIUM\TAZOBACTAM SODIUM
     Indication: CELLULITIS
     Dosage: 3.375 UOM NOT REPORTED, FREQ:1 HOUR, INTERVAL:8
     Route: 042
     Dates: start: 20150415, end: 20150420
  2. VANCOMYCIN HCL [Suspect]
     Active Substance: VANCOMYCIN HYDROCHLORIDE
     Indication: CELLULITIS
     Dosage: 1250 MG, FREQ:1 HOUR, INTERVAL:18
     Route: 042

REACTIONS (2)
  - Blood creatinine increased [Not Recovered/Not Resolved]
  - Antibiotic level above therapeutic [Not Recovered/Not Resolved]

NARRATIVE: CASE EVENT DATE: 20150421
